FAERS Safety Report 6760543-2 (Version None)
Quarter: 2010Q2

REPORT INFORMATION
  Report Type: 
  Country: None (occurrence: None)
  Receive Date: 20100607
  Receipt Date: 20100607
  Transmission Date: 20101027
  Serious: No
  Sender: FDA-Public Use
  Company Number: None

PATIENT
  Age: 87 Year
  Sex: Female

DRUGS (1)
  1. CATAPRES-TTS-3 [Suspect]
     Indication: HYPERTENSION
     Dosage: APPLY 1 PATCH WEEKLY
     Dates: start: 20100401, end: 20100407

REACTIONS (4)
  - BURNING SENSATION [None]
  - DYSPNOEA [None]
  - PRODUCT SUBSTITUTION ISSUE [None]
  - RASH [None]
